FAERS Safety Report 6558549-1 (Version None)
Quarter: 2010Q1

REPORT INFORMATION
  Report Type: 
  Country: None (occurrence: None)
  Receive Date: 20100129
  Receipt Date: 20100125
  Transmission Date: 20100710
  Serious: Yes (Life-Threatening, Hospitalization, Other)
  Sender: FDA-Public Use
  Company Number: IT-CELGENEUS-083-21880-09122140

PATIENT
  Sex: Male

DRUGS (3)
  1. REVLIMID [Suspect]
     Indication: MULTIPLE MYELOMA
     Route: 048
     Dates: start: 20080901
  2. REVLIMID [Suspect]
     Route: 048
     Dates: start: 20090102, end: 20090801
  3. DELTACORTENE [Concomitant]
     Indication: DRUG USE FOR UNKNOWN INDICATION
     Route: 048
     Dates: start: 20080901

REACTIONS (4)
  - BONE MARROW TOXICITY [None]
  - MULTIPLE MYELOMA [None]
  - NEOPLASM [None]
  - TOXIC SKIN ERUPTION [None]
